FAERS Safety Report 8907195 (Version 2)
Quarter: 2012Q4

REPORT INFORMATION
  Report Type: 
  Country: US (occurrence: US)
  Receive Date: 20121114
  Receipt Date: 20121128
  Transmission Date: 20130627
  Serious: Yes (Other)
  Sender: FDA-Public Use
  Company Number: PHHY2012US104665

PATIENT
  Age: 42 Year
  Sex: Female

DRUGS (4)
  1. CITALOPRAM [Suspect]
     Indication: DEPRESSION
  2. QUETIAPINE [Suspect]
     Indication: DEPRESSION
  3. ONDANSETRON [Suspect]
  4. ADDERALL [Suspect]
     Indication: DEPRESSION

REACTIONS (9)
  - Facial bones fracture [Unknown]
  - Serotonin syndrome [Recovering/Resolving]
  - Clonus [Recovered/Resolved]
  - Pyrexia [Recovering/Resolving]
  - Agitation [Recovering/Resolving]
  - Restlessness [Recovering/Resolving]
  - Unresponsive to stimuli [Recovering/Resolving]
  - Blood pressure fluctuation [Recovering/Resolving]
  - Muscle rigidity [Recovering/Resolving]
